FAERS Safety Report 15043186 (Version 2)
Quarter: 2018Q2

REPORT INFORMATION
  Report Type: Report from Study
  Country: None (occurrence: GR)
  Receive Date: 20180621
  Receipt Date: 20180628
  Transmission Date: 20180711
  Serious: Yes (Death, Hospitalization)
  Sender: FDA-Public Use
  Company Number: GR-ABBVIE-18K-066-2393383-00

PATIENT
  Age: 72 Year
  Sex: Female
  Weight: 59 kg

DRUGS (1)
  1. DUODOPA [Suspect]
     Active Substance: CARBIDOPA\LEVODOPA
     Indication: PARKINSON^S DISEASE
     Dosage: MORNING DOSE:8.9ML; CONTINUOUS RATE:2.3ML/H; EXTRA DOSE:1.5ML
     Route: 050
     Dates: start: 20171116

REACTIONS (3)
  - Pyrexia [Unknown]
  - Ischaemia [Fatal]
  - Lung consolidation [Fatal]

NARRATIVE: CASE EVENT DATE: 20180615
